FAERS Safety Report 25437855 (Version 1)
Quarter: 2025Q2

REPORT INFORMATION
  Report Type: Spontaneous
  Country: US (occurrence: US)
  Receive Date: 20250616
  Receipt Date: 20250616
  Transmission Date: 20250717
  Serious: Yes (Hospitalization)
  Sender: BOEHRINGER INGELHEIM
  Company Number: US-Komodo Health-a23aa0000086merAAA

PATIENT
  Age: 73 Year
  Sex: Female

DRUGS (2)
  1. JARDIANCE [Suspect]
     Active Substance: EMPAGLIFLOZIN
     Indication: Cardiac failure
  2. JARDIANCE [Suspect]
     Active Substance: EMPAGLIFLOZIN
     Indication: Nephropathy

REACTIONS (3)
  - Localised infection [Not Recovered/Not Resolved]
  - Dry mouth [Unknown]
  - Dehydration [Unknown]

NARRATIVE: CASE EVENT DATE: 20240101
